FAERS Safety Report 8152042 (Version 7)
Quarter: 2014Q2

REPORT INFORMATION
  Report Type: Report from Study
  Country: GB (occurrence: GB)
  Receive Date: 20110922
  Receipt Date: 20140630
  Transmission Date: 20141212
  Serious: Yes (Other)
  Sender: FDA-Public Use
  Company Number: GB-CELGENEUS-167-C5013-11091202

PATIENT
  Age: 66 Year
  Sex: Male

DRUGS (17)
  1. CC-5013 [Suspect]
     Indication: CHRONIC LYMPHOCYTIC LEUKAEMIA
     Dosage: 2.5 MILLIGRAM
     Route: 048
     Dates: start: 20100507
  2. CC-5013 [Suspect]
     Dosage: 2.5 MILLIGRAM
     Route: 048
     Dates: end: 20110722
  3. ALLOPURINOL [Concomitant]
     Indication: PRODUCT USED FOR UNKNOWN INDICATION
     Route: 065
  4. GRANULOCYTE COLONY-STIMULATING FACTOR NOS [Concomitant]
     Indication: NEUTROPENIA
     Route: 058
     Dates: end: 20130125
  5. GRANULOCYTE COLONY-STIMULATING FACTOR NOS [Concomitant]
     Route: 058
     Dates: start: 20110408
  6. ACYCLOVIR [Concomitant]
     Indication: PROPHYLAXIS
     Dosage: 800 MILLIGRAM
     Route: 048
     Dates: start: 20090601
  7. LANSOPRAZOLE [Concomitant]
     Indication: GASTRITIS PROPHYLAXIS
     Dosage: 30 MILLIGRAM
     Route: 048
     Dates: start: 2000
  8. GLIMEPIRIDE [Concomitant]
     Indication: TYPE 1 DIABETES MELLITUS
     Dosage: 4 MILLIGRAM
     Route: 048
     Dates: start: 2005
  9. INSULIN [Concomitant]
     Indication: TYPE 1 DIABETES MELLITUS
     Dosage: 44
     Route: 048
  10. EPREX [Concomitant]
     Indication: PANCYTOPENIA
     Route: 065
     Dates: start: 20131223
  11. FRUSEMIDE [Concomitant]
     Indication: PRODUCT USED FOR UNKNOWN INDICATION
     Route: 065
  12. METFORMIN [Concomitant]
     Indication: DIABETES MELLITUS
     Dosage: 1 GRAM
     Route: 048
     Dates: start: 20100618
  13. LANTUS [Concomitant]
     Indication: DIABETES MELLITUS
     Dosage: 14 IU (INTERNATIONAL UNIT)
     Route: 058
     Dates: start: 20100623
  14. FOLINIC ACID [Concomitant]
     Indication: SUPPLEMENTATION THERAPY
     Dosage: 5 MILLIGRAM
     Route: 048
     Dates: start: 200402
  15. PREDNISOLONE [Concomitant]
     Indication: PROPHYLAXIS
     Dosage: 40 MILLIGRAM
     Route: 048
     Dates: start: 20130812
  16. PREDNISOLONE [Concomitant]
     Indication: PROPHYLAXIS
     Dosage: 40 MILLIGRAM
     Route: 048
     Dates: start: 20130812
  17. PREDNISOLONE [Concomitant]
     Indication: MYELODYSPLASTIC SYNDROME

REACTIONS (2)
  - Hodgkin^s disease [Recovered/Resolved]
  - Acute myeloid leukaemia [Not Recovered/Not Resolved]
